FAERS Safety Report 20783173 (Version 1)
Quarter: 2022Q2

REPORT INFORMATION
  Report Type: Spontaneous
  Country: AR (occurrence: AR)
  Receive Date: 20220504
  Receipt Date: 20220504
  Transmission Date: 20220721
  Serious: Yes (Hospitalization, Other)
  Sender: FDA-Public Use
  Company Number: AR-PFIZER INC-2020372791

PATIENT
  Sex: Female

DRUGS (1)
  1. LORLATINIB [Interacting]
     Active Substance: LORLATINIB
     Indication: Non-small cell lung cancer metastatic
     Dosage: 100 MG, UNK

REACTIONS (4)
  - Acute psychosis [Unknown]
  - Euphoric mood [Unknown]
  - Drug dependence [Unknown]
  - Herbal interaction [Unknown]
